FAERS Safety Report 7644025-1 (Version None)
Quarter: 2011Q3

REPORT INFORMATION
  Report Type: 
  Country: None (occurrence: None)
  Receive Date: 20110729
  Receipt Date: 20110719
  Transmission Date: 20111222
  Serious: Yes (Other)
  Sender: FDA-Public Use
  Company Number: CH-PFIZER INC-2011169953

PATIENT
  Age: 64 Year
  Sex: Male
  Weight: 82 kg

DRUGS (6)
  1. EZETIMIBE/SIMVASTATIN [Concomitant]
     Route: 048
  2. AZITHROMYCIN [Concomitant]
     Route: 048
  3. PANTOPRAZOLE [Suspect]
     Indication: GASTROOESOPHAGEAL REFLUX DISEASE
     Dosage: 40 MG, UNK
     Route: 048
     Dates: start: 20110516, end: 20110603
  4. PANTOPRAZOLE [Suspect]
     Indication: OESOPHAGITIS
  5. COZAAR [Concomitant]
     Route: 048
  6. LOGROTON [Concomitant]
     Route: 048

REACTIONS (1)
  - GYNAECOMASTIA [None]
